FAERS Safety Report 9338938 (Version 1)
Quarter: 2013Q2

REPORT INFORMATION
  Report Type: Spontaneous
  Country: US (occurrence: US)
  Receive Date: 20130610
  Receipt Date: 20130610
  Transmission Date: 20140414
  Serious: Yes (Other)
  Sender: FDA-Public Use
  Company Number: US-PFIZER INC-2013173173

PATIENT
  Age: 38 Year
  Sex: Male
  Weight: 56.24 kg

DRUGS (3)
  1. RAPAMUNE [Suspect]
     Indication: RENAL FAILURE
     Dosage: UNK, 1X/DAY
     Route: 048
  2. PREDNISONE [Concomitant]
     Dosage: UNK
  3. METOPROLOL [Concomitant]
     Dosage: UNK

REACTIONS (3)
  - Renal failure [Unknown]
  - Off label use [Unknown]
  - Drug ineffective for unapproved indication [Unknown]
